FAERS Safety Report 24206713 (Version 1)
Quarter: 2024Q3

REPORT INFORMATION
  Report Type: Spontaneous
  Country: PL (occurrence: PL)
  Receive Date: 20240813
  Receipt Date: 20240813
  Transmission Date: 20241016
  Serious: Yes (Other)
  Sender: JAZZ
  Company Number: PL-JAZZ PHARMACEUTICALS-2024-PL-007444

PATIENT
  Age: 72 Year
  Sex: Female

DRUGS (2)
  1. VYXEOS [Suspect]
     Active Substance: CYTARABINE\DAUNORUBICIN
     Indication: Acute myeloid leukaemia
     Dosage: ACCORDING TO SPC
     Route: 042
  2. AZACITIDINE [Concomitant]
     Active Substance: AZACITIDINE
     Indication: Product used for unknown indication
     Dosage: 75 MILLIGRAM/SQ. METER

REACTIONS (4)
  - Enterobacter bacteraemia [Unknown]
  - Pneumonia [Unknown]
  - Bone marrow failure [Unknown]
  - Upper respiratory tract infection [Unknown]
